FAERS Safety Report 9899958 (Version 1)
Quarter: 2014Q1

REPORT INFORMATION
  Report Type: Not Available
  Country: US (occurrence: US)
  Receive Date: 20140214
  Receipt Date: 20140214
  Transmission Date: 20141002
  Serious: No
  Sender: FDA-Public Use
  Company Number: US-VIVUS-2013V1000845

PATIENT
  Age: 56 Year
  Sex: Female
  Weight: 88.98 kg

DRUGS (4)
  1. QSYMIA 3.75MG/23MG [Suspect]
     Indication: WEIGHT DECREASED
     Route: 048
     Dates: start: 201311, end: 201311
  2. QSYMIA 3.75MG/23MG [Suspect]
     Route: 048
     Dates: start: 201311
  3. LEVOTHYROXIN [Concomitant]
     Indication: HYPOTHYROIDISM
     Dates: start: 1993
  4. VITAMIN D-3 [Concomitant]
     Indication: VITAMIN D DECREASED

REACTIONS (4)
  - Paraesthesia [Not Recovered/Not Resolved]
  - Dry mouth [Not Recovered/Not Resolved]
  - Thirst [Not Recovered/Not Resolved]
  - Incorrect dose administered [Not Recovered/Not Resolved]
